FAERS Safety Report 17659930 (Version 1)
Quarter: 2020Q2

REPORT INFORMATION
  Report Type: Other
  Country: GB (occurrence: GB)
  Receive Date: 20200413
  Receipt Date: 20200413
  Transmission Date: 20200713
  Serious: No
  Sender: FDA-Public Use
  Company Number: GB-LUPIN PHARMACEUTICALS INC.-2019-04725

PATIENT
  Age: 24 Year
  Sex: Female
  Weight: 127 kg

DRUGS (1)
  1. LEVONORGESTREL. [Suspect]
     Active Substance: LEVONORGESTREL
     Indication: COMPLICATION ASSOCIATED WITH DEVICE
     Dosage: 1.5 MILLIGRAM, BID (WAS GIVEN 2 PILLS DUE TO MY WEIGHT)
     Route: 048
     Dates: start: 20190421

REACTIONS (1)
  - Feeling hot [Not Recovered/Not Resolved]

NARRATIVE: CASE EVENT DATE: 20190421
